FAERS Safety Report 8359211-5 (Version None)
Quarter: 2012Q2

REPORT INFORMATION
  Report Type: 
  Country: None (occurrence: None)
  Receive Date: 20120511
  Receipt Date: 20120503
  Transmission Date: 20120825
  Serious: Yes (Death)
  Sender: FDA-Public Use
  Company Number: FK201200624

PATIENT
  Age: 18 Year
  Sex: Female

DRUGS (5)
  1. FLURAZEPAM [Concomitant]
  2. IMIPRAMINE [Concomitant]
  3. HALOPERIDOL [Suspect]
     Indication: AGITATION
     Dosage: 1 MG, FREQUENCY AND ROUTE NOT PROVIDED
  4. ACETAMINOPHEN [Concomitant]
  5. DIAZEPAM [Concomitant]

REACTIONS (1)
  - CARDIAC ARREST [None]
